FAERS Safety Report 18440961 (Version 1)
Quarter: 2020Q4

REPORT INFORMATION
  Report Type: Spontaneous
  Country: CN (occurrence: CN)
  Receive Date: 20201029
  Receipt Date: 20201029
  Transmission Date: 20210114
  Serious: Yes (Other)
  Sender: FDA-Public Use
  Company Number: CN-009507513-2010CHN010117

PATIENT
  Age: 86 Year
  Sex: Male

DRUGS (2)
  1. DEXTROSE (+) SODIUM CHLORIDE [Concomitant]
     Indication: ANTI-INFECTIVE THERAPY
     Dosage: 100 MILLILITER, TID
     Route: 041
     Dates: start: 20201007, end: 20201010
  2. TIENAM [Suspect]
     Active Substance: CILASTATIN SODIUM\IMIPENEM
     Indication: ANTI-INFECTIVE THERAPY
     Dosage: 1 GRAM, TID
     Route: 041
     Dates: start: 20201007, end: 20201010

REACTIONS (1)
  - Epilepsy [Recovered/Resolved]

NARRATIVE: CASE EVENT DATE: 20201008
